FAERS Safety Report 4644370-8 (Version None)
Quarter: 2005Q2

REPORT INFORMATION
  Report Type: 
  Country: None (occurrence: None)
  Receive Date: 20050331
  Receipt Date: 20041215
  Transmission Date: 20051028
  Serious: No
  Sender: FDA-Public Use
  Company Number: 04P-163-0284089-00

PATIENT
  Age: 68 Year
  Sex: Male
  Weight: 92.0802 kg

DRUGS (3)
  1. HUMIRA [Suspect]
     Indication: RHEUMATOID ARTHRITIS
     Dosage: 40 MG, 1 IN 2 WK, SUBCUTANEOUS
     Route: 058
     Dates: start: 20030101, end: 20041101
  2. UNSPECIFIED INHALERS [Concomitant]
  3. UNSPECIFIED MEDICATIONS ASTHMA [Concomitant]

REACTIONS (3)
  - ASTHMA [None]
  - BRONCHITIS ACUTE [None]
  - SINUSITIS [None]
